FAERS Safety Report 10168697 (Version 1)
Quarter: 2014Q2

REPORT INFORMATION
  Report Type: Spontaneous
  Country: US (occurrence: US)
  Receive Date: 20140513
  Receipt Date: 20140513
  Transmission Date: 20141212
  Serious: Yes (Life-Threatening, Hospitalization)
  Sender: FDA-Public Use
  Company Number: US-ROCHE-1395633

PATIENT
  Age: 33 Year
  Sex: Male

DRUGS (10)
  1. KLONOPIN [Suspect]
     Indication: ANXIETY
     Dosage: AS NEEDED
     Route: 065
     Dates: start: 20130327, end: 201304
  2. KLONOPIN [Suspect]
     Indication: DEPRESSION
     Route: 065
     Dates: start: 20130424, end: 20140508
  3. LEXAPRO [Concomitant]
     Indication: ANXIETY
     Route: 065
     Dates: start: 201207, end: 2012
  4. LEXAPRO [Concomitant]
     Route: 065
     Dates: start: 2012, end: 201305
  5. LEXAPRO [Concomitant]
     Route: 065
     Dates: start: 20130513, end: 20130520
  6. BUSPAR [Concomitant]
     Route: 065
     Dates: start: 20130327, end: 20130424
  7. ZOLOFT [Concomitant]
     Route: 065
     Dates: start: 20130513, end: 20130519
  8. ZOLOFT [Concomitant]
     Route: 065
     Dates: start: 20130520, end: 201402
  9. LIPITOR [Concomitant]
     Indication: BLOOD CHOLESTEROL INCREASED
     Route: 065
     Dates: start: 2012, end: 2014
  10. MODAFINIL [Concomitant]
     Indication: INSOMNIA
     Route: 065

REACTIONS (17)
  - Suicidal ideation [Unknown]
  - Paranoia [Recovered/Resolved]
  - Eye irritation [Unknown]
  - Anxiety [Unknown]
  - Thinking abnormal [Recovered/Resolved]
  - Contusion [Unknown]
  - Aggression [Recovered/Resolved]
  - Loss of consciousness [Recovered/Resolved]
  - Asphyxia [Recovered/Resolved]
  - Irritability [Recovered/Resolved]
  - Mental impairment [Recovered/Resolved]
  - Feeling abnormal [Recovered/Resolved]
  - Schizoaffective disorder [Unknown]
  - Feeling of despair [Not Recovered/Not Resolved]
  - Amnesia [Recovered/Resolved]
  - Agitation [Recovered/Resolved]
  - Depression [Unknown]
